FAERS Safety Report 15786808 (Version 1)
Quarter: 2019Q1

REPORT INFORMATION
  Report Type: Spontaneous
  Country: US (occurrence: US)
  Receive Date: 20190103
  Receipt Date: 20190103
  Transmission Date: 20190417
  Serious: No
  Sender: FDA-Public Use
  Company Number: US-009507513-1812USA012519

PATIENT
  Age: 49 Year
  Sex: Female

DRUGS (3)
  1. CUBICIN [Suspect]
     Active Substance: DAPTOMYCIN
     Indication: OSTEOMYELITIS
  2. CUBICIN [Suspect]
     Active Substance: DAPTOMYCIN
     Indication: PROTEINURIA
  3. CUBICIN [Suspect]
     Active Substance: DAPTOMYCIN
     Indication: ACUTE KIDNEY INJURY

REACTIONS (1)
  - Product use in unapproved indication [Unknown]
